FAERS Safety Report 17779626 (Version 3)
Quarter: 2020Q2

REPORT INFORMATION
  Report Type: Spontaneous
  Country: None (occurrence: AU)
  Receive Date: 20200514
  Receipt Date: 20200514
  Transmission Date: 20200714
  Serious: Yes (Death, Life-Threatening, Hospitalization, Other)
  Sender: FDA-Public Use
  Company Number: AU-ORION CORPORATION ORION PHARMA-TREX2020-2006

PATIENT
  Age: 77 Year
  Sex: Male

DRUGS (1)
  1. METHOTREXATE. [Suspect]
     Active Substance: METHOTREXATE
     Indication: PSORIASIS
     Route: 048

REACTIONS (7)
  - Toxicity to various agents [Fatal]
  - Renal failure [Fatal]
  - Sepsis [Fatal]
  - Product dispensing error [Unknown]
  - Bone marrow failure [Fatal]
  - Product prescribing error [Unknown]
  - Product use issue [Unknown]
